FAERS Safety Report 4663690-4 (Version None)
Quarter: 2005Q2

REPORT INFORMATION
  Report Type: 
  Country: None (occurrence: None)
  Receive Date: 20050517
  Receipt Date: 20050503
  Transmission Date: 20051028
  Serious: Yes (Life-Threatening, Hospitalization)
  Sender: FDA-Public Use
  Company Number: 2005AP000405

PATIENT
  Age: 30 Year
  Sex: Male

DRUGS (4)
  1. GEMFIBROZIL [Suspect]
     Dosage: 600 MG; BID
     Dates: start: 20010301, end: 20020901
  2. LISINOPRIL [Concomitant]
  3. ASPIRIN [Concomitant]
  4. INSULIN [Concomitant]

REACTIONS (7)
  - BLOOD GLUCOSE DECREASED [None]
  - BLOOD GLUCOSE INCREASED [None]
  - DIZZINESS [None]
  - PLATELET COUNT INCREASED [None]
  - RENAL FAILURE [None]
  - RHABDOMYOLYSIS [None]
  - TREMOR [None]
